FAERS Safety Report 7523991-9 (Version None)
Quarter: 2011Q2

REPORT INFORMATION
  Report Type: 
  Country: None (occurrence: None)
  Receive Date: 20110603
  Receipt Date: 20110504
  Transmission Date: 20111010
  Serious: Yes (Other)
  Sender: FDA-Public Use
  Company Number: PL-GENENTECH-319493

PATIENT
  Age: 58 Year
  Sex: Female

DRUGS (5)
  1. RITUXIMAB [Suspect]
     Indication: B-CELL LYMPHOMA
     Dosage: UNK UNK, Q3W
     Route: 065
     Dates: start: 20090709, end: 20091221
  2. DAUNORUBICIN HCL [Suspect]
     Indication: B-CELL LYMPHOMA
     Dosage: UNK UNK, Q3W
     Route: 065
     Dates: start: 20090709, end: 20091221
  3. PREDNISONE [Suspect]
     Indication: B-CELL LYMPHOMA
     Dosage: UNK UNK, Q3W
     Route: 065
     Dates: start: 20090709, end: 20091221
  4. CYCLOPHOSPHAMIDE [Suspect]
     Indication: B-CELL LYMPHOMA
     Dosage: UNK UNK, Q3W
     Route: 065
     Dates: start: 20090709, end: 20091221
  5. ONCOVIN [Suspect]
     Indication: B-CELL LYMPHOMA
     Dosage: UNK UNK, Q3W
     Route: 065
     Dates: start: 20090709, end: 20091221

REACTIONS (3)
  - NEUTROPENIA [None]
  - FEMORAL NECK FRACTURE [None]
  - ANAEMIA [None]
